FAERS Safety Report 23342734 (Version 2)
Quarter: 2023Q4

REPORT INFORMATION
  Report Type: Spontaneous
  Country: CN (occurrence: CN)
  Receive Date: 20231227
  Receipt Date: 20231229
  Transmission Date: 20240110
  Serious: Yes (Life-Threatening, Other)
  Sender: FDA-Public Use
  Company Number: CN-PFIZER INC-PV202300204669

PATIENT
  Age: 63 Year
  Sex: Female

DRUGS (4)
  1. METHYLPREDNISOLONE [Suspect]
     Active Substance: METHYLPREDNISOLONE
     Indication: Evans syndrome
     Dosage: 28 MG, DAILY
     Route: 048
     Dates: start: 201909
  2. DEXAMETHASONE [Suspect]
     Active Substance: DEXAMETHASONE
     Indication: Evans syndrome
     Dosage: UNK
     Route: 042
     Dates: start: 201909
  3. UNSPECIFIED INGREDIENT [Concomitant]
     Active Substance: UNSPECIFIED INGREDIENT
     Indication: Evans syndrome
     Dosage: UNK
  4. VANCOMYCIN [Concomitant]
     Active Substance: VANCOMYCIN
     Indication: Evans syndrome
     Dosage: UNK

REACTIONS (5)
  - Pneumonia fungal [Recovering/Resolving]
  - Splenic embolism [Recovering/Resolving]
  - Fungal infection [Recovered/Resolved]
  - Varicella zoster virus infection [Recovering/Resolving]
  - Viral test positive [Recovering/Resolving]
